FAERS Safety Report 6052707-0 (Version None)
Quarter: 2009Q1

REPORT INFORMATION
  Report Type: 
  Country: None (occurrence: None)
  Receive Date: 20090127
  Receipt Date: 20090121
  Transmission Date: 20090719
  Serious: Yes (Other)
  Sender: FDA-Public Use
  Company Number: NO-BAXTER-2009BH001079

PATIENT

DRUGS (3)
  1. HOLOXAN BAXTER [Suspect]
     Indication: SARCOMA
     Route: 065
     Dates: end: 20080101
  2. BLEOMYCIN GENERIC [Suspect]
     Indication: SARCOMA
     Route: 065
  3. CISPLATIN [Suspect]
     Indication: SARCOMA
     Route: 065

REACTIONS (1)
  - MUSCLE SPASMS [None]
